FAERS Safety Report 15905350 (Version 1)
Quarter: 2019Q1

REPORT INFORMATION
  Report Type: Spontaneous
  Country: US (occurrence: US)
  Receive Date: 20190204
  Receipt Date: 20190204
  Transmission Date: 20190417
  Serious: Yes (Hospitalization, Other)
  Sender: FDA-Public Use
  Company Number: US-GLENMARK PHARMACEUTICALS-2019GMK039569

PATIENT
  Sex: Female

DRUGS (4)
  1. LITHIUM. [Suspect]
     Active Substance: LITHIUM
     Indication: MANIA
     Dosage: 300 MG, QD (TOOK LITHIUM ONLY OCCASIONALLY)
     Route: 048
  2. LITHIUM. [Suspect]
     Active Substance: LITHIUM
     Dosage: 600 MG, OD (NIGHTLY; TOOK LITHIUM ONLY OCCASIONALLY)
     Route: 048
  3. OLANZAPINE. [Suspect]
     Active Substance: OLANZAPINE
     Indication: PSYCHOTIC DISORDER
     Dosage: 5 MG, UNK
     Route: 030
  4. LORAZEPAM. [Concomitant]
     Active Substance: LORAZEPAM
     Indication: PSYCHOTIC DISORDER
     Dosage: 2 MG, UNK
     Route: 048

REACTIONS (1)
  - Catatonia [Recovering/Resolving]
